FAERS Safety Report 6956914-1 (Version None)
Quarter: 2010Q3

REPORT INFORMATION
  Report Type: 
  Country: None (occurrence: None)
  Receive Date: 20100826
  Receipt Date: 20100811
  Transmission Date: 20110219
  Serious: Yes (Other)
  Sender: FDA-Public Use
  Company Number: AMAG201000292

PATIENT
  Age: 76 Year
  Sex: Male
  Weight: 75.8 kg

DRUGS (10)
  1. FERAHEME [Suspect]
     Dosage: 210 MG, SINGLE, INTRAVENOUS
     Route: 042
     Dates: start: 20100712, end: 20100712
  2. ALTEPLASE (ALTEPLASE) [Concomitant]
  3. CARDIZEM [Concomitant]
  4. COUMADIN [Concomitant]
  5. DIOVAN [Concomitant]
  6. FERROUS SULFATE TAB [Concomitant]
  7. HEPARIN [Concomitant]
  8. LOPRESSOR [Concomitant]
  9. RENVELA [Concomitant]
  10. ACETAMINOPHEN [Concomitant]

REACTIONS (5)
  - DRUG HYPERSENSITIVITY [None]
  - DYSPNOEA [None]
  - ERYTHEMA [None]
  - FLUSHING [None]
  - UNRESPONSIVE TO STIMULI [None]
